FAERS Safety Report 11632247 (Version 1)
Quarter: 2015Q4

REPORT INFORMATION
  Report Type: Spontaneous
  Country: US (occurrence: None)
  Receive Date: 20151014
  Receipt Date: 20151014
  Transmission Date: 20160304
  Serious: Yes (Other)
  Sender: FDA-Public Use
  Company Number: None

PATIENT
  Age: 15 Year
  Sex: Male
  Weight: 77.11 kg

DRUGS (3)
  1. AMOX?CLAV XR 100/62.5MG TABLETS 1000/62.5MG UNKNOWN [Suspect]
     Active Substance: AMOXICILLIN\CLAVULANIC ACID
     Indication: PNEUMONIA BACTERIAL
     Route: 048
     Dates: start: 20150929, end: 20151007
  2. NAPROXINAL [Concomitant]
  3. IBUPROFEN. [Concomitant]
     Active Substance: IBUPROFEN

REACTIONS (2)
  - Incorrect drug administration duration [None]
  - Pain in extremity [None]

NARRATIVE: CASE EVENT DATE: 20151005
